FAERS Safety Report 8425321-7 (Version None)
Quarter: 2012Q2

REPORT INFORMATION
  Report Type: 
  Country: None (occurrence: None)
  Receive Date: 20120605
  Receipt Date: 20120605
  Transmission Date: 20120825
  Serious: Yes (Death)
  Sender: FDA-Public Use
  Company Number: None

PATIENT
  Age: 25 Year
  Sex: Male
  Weight: 74.8435 kg

DRUGS (1)
  1. METHADONE HCL [Suspect]
     Indication: NEURALGIA
     Dates: start: 20070924, end: 20070926

REACTIONS (1)
  - DEATH [None]
